FAERS Safety Report 15341247 (Version 4)
Quarter: 2020Q3

REPORT INFORMATION
  Report Type: Report from Study
  Country: PA (occurrence: PA)
  Receive Date: 20180831
  Receipt Date: 20200810
  Transmission Date: 20201102
  Serious: Yes (Other)
  Sender: FDA-Public Use
  Company Number: PHHY2018PA082738

PATIENT
  Sex: Male
  Weight: 92 kg

DRUGS (3)
  1. SANDOSTATIN LAR DEPOT [Suspect]
     Active Substance: OCTREOTIDE ACETATE
     Dosage: 1 DF, QMO
     Route: 030
  2. SANDOSTATIN LAR DEPOT [Suspect]
     Active Substance: OCTREOTIDE ACETATE
     Dosage: 40 MG (EVERY 20 DAYS)
     Route: 065
  3. SANDOSTATIN LAR DEPOT [Suspect]
     Active Substance: OCTREOTIDE ACETATE
     Indication: HYPOGLYCAEMIA
     Dosage: 20 MG (2 INJECTION EVERY 21 DAYS)
     Route: 065
     Dates: start: 20140401

REACTIONS (16)
  - Glycosylated haemoglobin decreased [Unknown]
  - Blood pressure decreased [Unknown]
  - Malaise [Unknown]
  - Feeling abnormal [Unknown]
  - Inappropriate schedule of product administration [Unknown]
  - Seizure [Unknown]
  - Hypoglycaemia [Unknown]
  - Product use in unapproved indication [Unknown]
  - Irritability [Unknown]
  - Blood glucose abnormal [Unknown]
  - Hepatic steatosis [Recovering/Resolving]
  - General physical health deterioration [Recovering/Resolving]
  - Exercise tolerance decreased [Unknown]
  - Hypoglycaemia [Recovered/Resolved]
  - Nervousness [Unknown]
  - Product storage error [Unknown]
